FAERS Safety Report 8407741-X (Version None)
Quarter: 2012Q2

REPORT INFORMATION
  Report Type: 
  Country: None (occurrence: None)
  Receive Date: 20120604
  Receipt Date: 20120403
  Transmission Date: 20120825
  Serious: Yes (Other)
  Sender: FDA-Public Use
  Company Number: US-GLAXOSMITHKLINE-A0972192A

PATIENT
  Age: 68 Year
  Sex: Female

DRUGS (4)
  1. XOPENEX [Concomitant]
  2. ADVAIR DISKUS 100/50 [Suspect]
     Indication: ASTHMA
     Dosage: 1PUFF TWICE PER DAY
     Route: 055
     Dates: start: 20120301, end: 20120529
  3. LIPITOR [Concomitant]
  4. VERAPAMIL HCL [Concomitant]

REACTIONS (2)
  - HEART RATE INCREASED [None]
  - CARDIAC FIBRILLATION [None]
